FAERS Safety Report 12743043 (Version 1)
Quarter: 2016Q3

REPORT INFORMATION
  Report Type: Spontaneous
  Country: US (occurrence: US)
  Receive Date: 20160914
  Receipt Date: 20160914
  Transmission Date: 20161109
  Serious: No
  Sender: FDA-Public Use
  Company Number: US-SIGMA-TAU US-2016STPI000305

PATIENT
  Age: 62 Year
  Sex: Female

DRUGS (2)
  1. MATULANE [Suspect]
     Active Substance: PROCARBAZINE HYDROCHLORIDE
     Indication: BRAIN NEOPLASM MALIGNANT
     Dosage: 100 MG, QD, FOR 14 DAYS OF EACH CYCLE
     Route: 048
     Dates: start: 20160401
  2. MATULANE [Suspect]
     Active Substance: PROCARBAZINE HYDROCHLORIDE
     Dosage: 50 MG, QD, DAYS 8-14 OF EACH CYCLE
     Route: 048
     Dates: start: 20160401

REACTIONS (4)
  - Myalgia [Not Recovered/Not Resolved]
  - Fatigue [Not Recovered/Not Resolved]
  - Nausea [Not Recovered/Not Resolved]
  - Abdominal pain upper [Not Recovered/Not Resolved]

NARRATIVE: CASE EVENT DATE: 20160401
